FAERS Safety Report 5989036-7 (Version None)
Quarter: 2008Q4

REPORT INFORMATION
  Report Type: 
  Country: None (occurrence: None)
  Receive Date: 20081210
  Receipt Date: 20081209
  Transmission Date: 20090506
  Serious: Yes (Hospitalization)
  Sender: FDA-Public Use
  Company Number: B0549697A

PATIENT
  Age: 82 Year
  Sex: Female
  Weight: 68 kg

DRUGS (10)
  1. ROSIGLITAZONE [Suspect]
     Dosage: 4MG PER DAY
     Route: 048
     Dates: start: 20060616, end: 20081115
  2. SIMVASTATIN [Concomitant]
  3. ACETAMINOPHEN [Concomitant]
  4. METFORMIN HCL [Concomitant]
  5. LISINOPRIL [Concomitant]
  6. LEVOTHYROXINE SODIUM [Concomitant]
  7. GLICLAZIDE [Concomitant]
  8. ATENOLOL [Concomitant]
  9. ASPIRIN [Concomitant]
  10. HALOPERIDOL [Concomitant]

REACTIONS (1)
  - LIVER INJURY [None]
